FAERS Safety Report 15889170 (Version 1)
Quarter: 2019Q1

REPORT INFORMATION
  Report Type: Spontaneous
  Country: JP (occurrence: JP)
  Receive Date: 20190130
  Receipt Date: 20190130
  Transmission Date: 20190417
  Serious: Yes (Other)
  Sender: FDA-Public Use
  Company Number: JP-BAYER-2019-017724

PATIENT
  Age: 90 Year
  Sex: Female

DRUGS (2)
  1. BAYASPIRIN 100 MG [Suspect]
     Active Substance: ASPIRIN
     Route: 048
  2. HEPARIN CA [Suspect]
     Active Substance: HEPARIN CALCIUM

REACTIONS (1)
  - Anaemia [Recovering/Resolving]
